FAERS Safety Report 20097424 (Version 1)
Quarter: 2021Q4

REPORT INFORMATION
  Report Type: Spontaneous
  Country: KR (occurrence: KR)
  Receive Date: 20211122
  Receipt Date: 20211122
  Transmission Date: 20220304
  Serious: Yes (Other)
  Sender: FDA-Public Use
  Company Number: KR-002147023-NVSC2021KR257230

PATIENT

DRUGS (5)
  1. RUXOLITINIB [Suspect]
     Active Substance: RUXOLITINIB
     Indication: Chronic myeloid leukaemia
     Dosage: 35 MG/M2, QD
     Route: 065
  2. RUXOLITINIB [Suspect]
     Active Substance: RUXOLITINIB
     Dosage: 13 MG/M2, QD (MAINTAINED FOR 10 WEEKS)
     Route: 065
  3. MANNITOL [Concomitant]
     Active Substance: MANNITOL
     Indication: Haemorrhage intracranial
     Dosage: UNK, UNKNOWN
     Route: 065
  4. DEXAMETHASONE [Concomitant]
     Active Substance: DEXAMETHASONE
     Indication: Haemorrhage intracranial
     Dosage: UNK UNK, UNKNOWN
     Route: 065
  5. LEVETIRACETAM [Concomitant]
     Active Substance: LEVETIRACETAM
     Indication: Haemorrhage intracranial
     Dosage: UNK UNK, UNKNOWN
     Route: 065

REACTIONS (4)
  - Therapy non-responder [Unknown]
  - Blast cell count increased [Unknown]
  - Product use in unapproved indication [Unknown]
  - Product use issue [Unknown]
